FAERS Safety Report 12906054 (Version 2)
Quarter: 2016Q4

REPORT INFORMATION
  Report Type: Report from Study
  Country: TH (occurrence: TH)
  Receive Date: 20161103
  Receipt Date: 20161116
  Transmission Date: 20170207
  Serious: Yes (Hospitalization)
  Sender: FDA-Public Use
  Company Number: TH-ROCHE-1842259

PATIENT
  Age: 57 Year
  Sex: Female
  Weight: 56.9 kg

DRUGS (7)
  1. TRASTUZUMAB [Suspect]
     Active Substance: TRASTUZUMAB
     Indication: HER-2 POSITIVE BREAST CANCER
     Dosage: LOADING DOSE?LAST DOSE PRIOR TO SAE : 23/SEP/2016
     Route: 042
     Dates: start: 20100422
  2. TRASTUZUMAB [Suspect]
     Active Substance: TRASTUZUMAB
     Dosage: MAINTANANCE DOSE?LAST DOSE PRIOR TO SAE : 23/SEP/2016
     Route: 042
     Dates: end: 20161010
  3. CETRIZINE [Concomitant]
     Active Substance: CETIRIZINE HYDROCHLORIDE
     Route: 065
     Dates: start: 20160902
  4. PERTUZUMAB [Suspect]
     Active Substance: PERTUZUMAB
     Route: 042
     Dates: end: 20161010
  5. BISOLVON [Concomitant]
     Active Substance: BROMHEXINE HYDROCHLORIDE
     Route: 065
     Dates: start: 20160923
  6. PERTUZUMAB [Suspect]
     Active Substance: PERTUZUMAB
     Indication: HER-2 POSITIVE BREAST CANCER
     Dosage: LOADING DOSE?LASTS DOSE PRIOR TO SAE : 23/SEP/2016
     Route: 042
     Dates: start: 20100421
  7. DEXAMETHASONE. [Concomitant]
     Active Substance: DEXAMETHASONE
     Route: 065
     Dates: start: 20160902, end: 20161020

REACTIONS (5)
  - Dyspnoea [Recovering/Resolving]
  - Left ventricular failure [Unknown]
  - Atypical pneumonia [Recovering/Resolving]
  - Cardiomyopathy [Recovering/Resolving]
  - Pulmonary fibrosis [Recovering/Resolving]

NARRATIVE: CASE EVENT DATE: 20161006
